FAERS Safety Report 8424474-4 (Version None)
Quarter: 2012Q2

REPORT INFORMATION
  Report Type: 
  Country: None (occurrence: None)
  Receive Date: 20120605
  Receipt Date: 20120605
  Transmission Date: 20120825
  Serious: Yes (Other)
  Sender: FDA-Public Use
  Company Number: None

PATIENT
  Sex: Female

DRUGS (5)
  1. HUMULIN U 500 INSULIN [Concomitant]
  2. ALLOPURINOL [Concomitant]
  3. HUMALOG [Concomitant]
  4. CRESTOR [Suspect]
     Indication: ISCHAEMIC HEART DISEASE PROPHYLAXIS
     Dosage: 20MG ONCE A DAY PO
     Route: 048
     Dates: start: 20111101, end: 20120526
  5. DIOVAN HCT [Concomitant]

REACTIONS (5)
  - MYALGIA [None]
  - SLEEP DISORDER [None]
  - MUSCULAR WEAKNESS [None]
  - PAIN IN EXTREMITY [None]
  - ABASIA [None]
